FAERS Safety Report 16978998 (Version 1)
Quarter: 2019Q4

REPORT INFORMATION
  Report Type: Spontaneous
  Country: US (occurrence: US)
  Receive Date: 20191031
  Receipt Date: 20191031
  Transmission Date: 20200122
  Serious: Yes (Other)
  Sender: FDA-Public Use
  Company Number: US-PFIZER INC-2019465490

PATIENT
  Sex: Female

DRUGS (1)
  1. LYRICA [Suspect]
     Active Substance: PREGABALIN
     Indication: SEIZURE
     Dosage: 50 MG, AS NEEDED
     Route: 048

REACTIONS (5)
  - Road traffic accident [Unknown]
  - Weight increased [Unknown]
  - Drug ineffective [Unknown]
  - Pain [Unknown]
  - Gait inability [Unknown]
